FAERS Safety Report 19814658 (Version 1)
Quarter: 2021Q3

REPORT INFORMATION
  Report Type: Spontaneous
  Country: CN (occurrence: CN)
  Receive Date: 20210910
  Receipt Date: 20210910
  Transmission Date: 20211014
  Serious: Yes (Hospitalization)
  Sender: FDA-Public Use
  Company Number: CN-PFIZER INC-202101146551

PATIENT
  Age: 47 Year
  Sex: Male
  Weight: 45 kg

DRUGS (3)
  1. DIFLUCAN [Suspect]
     Active Substance: FLUCONAZOLE
     Indication: ABDOMINAL INFECTION
  2. DIFLUCAN [Suspect]
     Active Substance: FLUCONAZOLE
     Indication: FUNGAL INFECTION
  3. DIFLUCAN [Suspect]
     Active Substance: FLUCONAZOLE
     Indication: UPPER GASTROINTESTINAL HAEMORRHAGE
     Dosage: 200 MG, 1X/DAY
     Route: 041
     Dates: start: 20210602, end: 20210615

REACTIONS (6)
  - Hepatic failure [Recovering/Resolving]
  - Drug-induced liver injury [Recovering/Resolving]
  - Hepatic encephalopathy [Recovering/Resolving]
  - Jaundice [Recovering/Resolving]
  - Depressed level of consciousness [Recovering/Resolving]
  - Ocular icterus [Recovering/Resolving]

NARRATIVE: CASE EVENT DATE: 20210603
